FAERS Safety Report 20717000 (Version 1)
Quarter: 2022Q2

REPORT INFORMATION
  Report Type: Spontaneous
  Country: US (occurrence: US)
  Receive Date: 20220417
  Receipt Date: 20220417
  Transmission Date: 20220721
  Serious: No
  Sender: FDA-Public Use
  Company Number: US-SA-SAC20220408001472

PATIENT
  Age: 75 Year
  Sex: Female

DRUGS (1)
  1. ISATUXIMAB [Suspect]
     Active Substance: ISATUXIMAB
     Dosage: UNK

REACTIONS (6)
  - Conjunctival oedema [Recovering/Resolving]
  - Eye pain [Recovering/Resolving]
  - Eye swelling [Recovering/Resolving]
  - Eye irritation [Recovering/Resolving]
  - Foreign body sensation in eyes [Recovering/Resolving]
  - Visual acuity reduced [Recovering/Resolving]
